FAERS Safety Report 11888901 (Version 1)
Quarter: 2016Q1

REPORT INFORMATION
  Report Type: Spontaneous
  Country: US (occurrence: US)
  Receive Date: 20160105
  Receipt Date: 20160105
  Transmission Date: 20160526
  Serious: No
  Sender: FDA-Public Use
  Company Number: US-AKRON, INC.-1046139

PATIENT
  Sex: Male

DRUGS (1)
  1. DRONABINOL 5MG [Suspect]
     Active Substance: DRONABINOL
     Indication: PAIN
     Route: 048

REACTIONS (2)
  - Drug ineffective [Recovered/Resolved]
  - Product quality issue [None]
